FAERS Safety Report 15731553 (Version 1)
Quarter: 2018Q4

REPORT INFORMATION
  Report Type: Spontaneous
  Country: US (occurrence: US)
  Receive Date: 20181217
  Receipt Date: 20181217
  Transmission Date: 20190205
  Serious: Yes (Other)
  Sender: FDA-Public Use
  Company Number: None

PATIENT
  Age: 67 Year
  Sex: Female
  Weight: 72 kg

DRUGS (22)
  1. METHOTREXATE 2.5 MG TABLETS [Suspect]
     Active Substance: METHOTREXATE
     Indication: RHEUMATOID ARTHRITIS
     Dosage: ?          QUANTITY:96 TABLET(S);OTHER FREQUENCY:8 TABS ONCE A WEEK;?
     Route: 048
     Dates: start: 20181120
  2. VENLAFAXINE [Concomitant]
     Active Substance: VENLAFAXINE HYDROCHLORIDE
  3. PROBIOTIC [Concomitant]
     Active Substance: PROBIOTICS NOS
  4. VITAMIN C [Concomitant]
     Active Substance: ASCORBIC ACID
  5. SPIROLACTONE [Concomitant]
     Active Substance: SPIRONOLACTONE
  6. GLYCOPYRROLATE. [Concomitant]
     Active Substance: GLYCOPYRROLATE
  7. REPLAGLINIDE [Concomitant]
  8. SITAGLIPIN [Concomitant]
  9. HYDROXYCHLOROQUINE [Concomitant]
     Active Substance: HYDROXYCHLOROQUINE
  10. GUAIFENESIN. [Concomitant]
     Active Substance: GUAIFENESIN
  11. PRAVASTATIN. [Concomitant]
     Active Substance: PRAVASTATIN
  12. DICLOFENAC GEL [Concomitant]
     Active Substance: DICLOFENAC
  13. MULTIVITAMIN [Concomitant]
     Active Substance: VITAMINS
  14. CALCIUM [Concomitant]
     Active Substance: CALCIUM
  15. FOLIC ACID. [Concomitant]
     Active Substance: FOLIC ACID
  16. METFORMIN [Concomitant]
     Active Substance: METFORMIN HYDROCHLORIDE
  17. VERAPAMIL [Concomitant]
     Active Substance: VERAPAMIL HYDROCHLORIDE
  18. TRAMADOL. [Concomitant]
     Active Substance: TRAMADOL
  19. HYDRALAZINE [Concomitant]
     Active Substance: HYDRALAZINE HYDROCHLORIDE
  20. METHOTREXATE. [Concomitant]
     Active Substance: METHOTREXATE
  21. DOCUSATE SODIUM. [Concomitant]
     Active Substance: DOCUSATE SODIUM
  22. LOSARTAN. [Concomitant]
     Active Substance: LOSARTAN

REACTIONS (1)
  - Hypoglycaemia [None]

NARRATIVE: CASE EVENT DATE: 20181122
